FAERS Safety Report 9807931 (Version 1)
Quarter: 2014Q1

REPORT INFORMATION
  Report Type: Spontaneous
  Country: US (occurrence: US)
  Receive Date: 20140110
  Receipt Date: 20140110
  Transmission Date: 20141002
  Serious: Yes (Death)
  Sender: FDA-Public Use
  Company Number: US-JNJFOC-20140104365

PATIENT
  Age: 34 Year
  Sex: Male

DRUGS (12)
  1. TOPIRAMATE [Suspect]
     Indication: SUICIDE ATTEMPT
     Route: 048
  2. PROPRANOLOL [Suspect]
     Indication: SUICIDE ATTEMPT
     Route: 048
  3. CARVEDILOL [Suspect]
     Indication: SUICIDE ATTEMPT
     Route: 048
  4. RANOLAZINE [Suspect]
     Indication: SUICIDE ATTEMPT
     Route: 048
  5. MILNACIPRAN [Suspect]
     Indication: SUICIDE ATTEMPT
     Route: 048
  6. MIRTAZAPINE [Suspect]
     Indication: SUICIDE ATTEMPT
     Route: 048
  7. CLOPIDOGREL [Suspect]
     Indication: SUICIDE ATTEMPT
     Route: 048
  8. ACETAMINOPHEN/HYDROCODONE [Suspect]
     Indication: SUICIDE ATTEMPT
     Route: 048
  9. SIMVASTATIN [Suspect]
     Indication: SUICIDE ATTEMPT
     Route: 048
  10. SALICYLATES NOS [Suspect]
     Indication: SUICIDE ATTEMPT
     Route: 048
  11. ALPRAZOLAM [Suspect]
     Indication: SUICIDE ATTEMPT
     Route: 048
  12. HYDROXYZINE [Suspect]
     Indication: SUICIDE ATTEMPT
     Route: 048

REACTIONS (1)
  - Toxicity to various agents [Fatal]
